FAERS Safety Report 16645275 (Version 2)
Quarter: 2019Q3

REPORT INFORMATION
  Report Type: Report from Study
  Country: IT (occurrence: IT)
  Receive Date: 20190729
  Receipt Date: 20190805
  Transmission Date: 20191004
  Serious: Yes (Death, Hospitalization)
  Sender: FDA-Public Use
  Company Number: IT-PFIZER INC-2019232715

PATIENT

DRUGS (5)
  1. ATGAM [Suspect]
     Active Substance: EQUINE THYMOCYTE IMMUNE GLOBULIN
     Indication: APLASTIC ANAEMIA
     Dosage: 40 MG/KG, DAILY (FOR 4 DAY)
     Dates: start: 20180316, end: 20180319
  2. METHYLPREDNISOLONE. [Concomitant]
     Active Substance: METHYLPREDNISOLONE
     Dosage: 8 MG, 1X/DAY
     Route: 048
     Dates: start: 20180316
  3. ZELITREX [Concomitant]
     Active Substance: VALACYCLOVIR HYDROCHLORIDE
     Indication: PROPHYLAXIS
     Dosage: UNK, 1X/DAY (1000)
     Route: 048
     Dates: start: 20180316
  4. MATRIFEN [Concomitant]
     Active Substance: FENTANYL
     Indication: PAIN
     Dosage: 12.5 MG, CYCLIC (EVERY 72 HOURS)
     Route: 062
     Dates: start: 20190412
  5. SANDIMMUN [Suspect]
     Active Substance: CYCLOSPORINE
     Indication: APLASTIC ANAEMIA
     Dosage: 100 MG, 2X/DAY
     Dates: start: 20180316, end: 20190508

REACTIONS (2)
  - Lung cancer metastatic [Fatal]
  - Tumour necrosis [Not Recovered/Not Resolved]

NARRATIVE: CASE EVENT DATE: 20190508
